FAERS Safety Report 11813748 (Version 1)
Quarter: 2015Q4

REPORT INFORMATION
  Report Type: Spontaneous
  Country: US (occurrence: None)
  Receive Date: 20151208
  Receipt Date: 20151208
  Transmission Date: 20160305
  Serious: No
  Sender: FDA-Public Use
  Company Number: None

PATIENT
  Age: 25 Year
  Sex: Female

DRUGS (1)
  1. NEXPLANON [Suspect]
     Active Substance: ETONOGESTREL
     Dates: start: 20140317, end: 20151201

REACTIONS (3)
  - Complication of device removal [None]
  - Weight increased [None]
  - Device breakage [None]

NARRATIVE: CASE EVENT DATE: 20151201
